FAERS Safety Report 8837178 (Version 1)
Quarter: 2012Q4

REPORT INFORMATION
  Report Type: 
  Country: US (occurrence: US)
  Receive Date: 20121011
  Receipt Date: 20121011
  Transmission Date: 20130627
  Serious: Yes (Hospitalization)
  Sender: FDA-Public Use
  Company Number: US-ROCHE-1139752

PATIENT
  Sex: Female
  Weight: 11.6 kg

DRUGS (5)
  1. PROTROPIN [Suspect]
     Indication: DWARFISM
     Dosage: 0.2 cc
     Route: 058
     Dates: start: 19870612
  2. PROTROPIN [Suspect]
     Route: 058
  3. PHENOBARBITAL [Concomitant]
     Dosage: half teaspoon
     Route: 065
  4. SYNTHROID [Concomitant]
     Route: 065
  5. PREDNISONE [Concomitant]
     Route: 065

REACTIONS (1)
  - Hypoglycaemic seizure [Unknown]
